FAERS Safety Report 10687311 (Version 1)
Quarter: 2015Q1

REPORT INFORMATION
  Report Type: Spontaneous
  Country: US (occurrence: US)
  Receive Date: 20150102
  Receipt Date: 20150102
  Transmission Date: 20150720
  Serious: No
  Sender: FDA-Public Use
  Company Number: US-BAYER-2014-190592

PATIENT
  Age: 48 Year
  Sex: Female

DRUGS (1)
  1. CLIMARA [Suspect]
     Active Substance: ESTRADIOL
     Indication: HYSTERECTOMY
     Dosage: 1 DF, OW
     Route: 062

REACTIONS (1)
  - Application site rash [None]

NARRATIVE: CASE EVENT DATE: 2014
